FAERS Safety Report 9698242 (Version 1)
Quarter: 2013Q4

REPORT INFORMATION
  Report Type: Spontaneous
  Country: US (occurrence: US)
  Receive Date: 20131120
  Receipt Date: 20131120
  Transmission Date: 20140711
  Serious: No
  Sender: FDA-Public Use
  Company Number: US-ENDO PHARMACEUTICALS INC.-SOTA20120004

PATIENT
  Age: 73 Year
  Sex: Female

DRUGS (1)
  1. SOTALOL HYDROCHLORIDE [Suspect]
     Indication: HEART RATE IRREGULAR
     Dosage: 80 MG
     Route: 048
     Dates: start: 20120301

REACTIONS (3)
  - Arthralgia [Unknown]
  - Dyspepsia [Unknown]
  - Abdominal pain upper [Unknown]
